FAERS Safety Report 18662386 (Version 5)
Quarter: 2021Q1

REPORT INFORMATION
  Report Type: Spontaneous
  Country: JP (occurrence: JP)
  Receive Date: 20201224
  Receipt Date: 20210126
  Transmission Date: 20210419
  Serious: Yes (Disabling)
  Sender: FDA-Public Use
  Company Number: JP-ALLERGAN-2049533US

PATIENT
  Sex: Female

DRUGS (5)
  1. DOGMATYL [Concomitant]
     Active Substance: SULPIRIDE
     Indication: PRODUCT USED FOR UNKNOWN INDICATION
     Dosage: 25 MG, QD
     Dates: start: 20161026
  2. SEPAZON [Concomitant]
     Active Substance: CLOXAZOLAM
     Indication: PRODUCT USED FOR UNKNOWN INDICATION
     Dosage: 0.5 MG, QD
     Dates: start: 20161026
  3. ESCITALOPRAM OXALATE ? BP [Suspect]
     Active Substance: ESCITALOPRAM OXALATE
     Indication: DEPRESSIVE SYMPTOM
     Dosage: 10 MG, SINGLE
     Route: 048
     Dates: start: 20161025, end: 20161025
  4. DOGMATYL [Concomitant]
     Active Substance: SULPIRIDE
     Dosage: 50 MG
     Route: 065
     Dates: start: 20161011, end: 20161025
  5. SEPAZON [Concomitant]
     Active Substance: CLOXAZOLAM
     Dosage: 0.5 MG, Q12H
     Dates: start: 20161011, end: 20161025

REACTIONS (3)
  - Skull fracture [Recovered/Resolved with Sequelae]
  - Cranial nerve disorder [Not Recovered/Not Resolved]
  - Syncope [Unknown]

NARRATIVE: CASE EVENT DATE: 20161026
